FAERS Safety Report 9676185 (Version 1)
Quarter: 2013Q4

REPORT INFORMATION
  Report Type: Spontaneous
  Country: US (occurrence: US)
  Receive Date: 20131107
  Receipt Date: 20131107
  Transmission Date: 20140711
  Serious: Yes (Other)
  Sender: FDA-Public Use
  Company Number: US-MYLANLABS-2013S1024378

PATIENT
  Age: 46 Year
  Sex: Male
  Weight: 83.92 kg

DRUGS (2)
  1. PERPHENAZINE AND AMITRIPTYLINE HYDROCHLORIDE TABLETS, USP [Suspect]
     Indication: DEPRESSION
     Route: 048
     Dates: start: 201309, end: 20130925
  2. XANAX [Concomitant]
     Indication: ANXIETY

REACTIONS (3)
  - Convulsion [Recovered/Resolved]
  - Night sweats [Recovered/Resolved]
  - Drug hypersensitivity [Recovered/Resolved]
